FAERS Safety Report 4581099-9 (Version None)
Quarter: 2005Q1

REPORT INFORMATION
  Report Type: 
  Country: None (occurrence: None)
  Receive Date: 20050214
  Receipt Date: 20040805
  Transmission Date: 20050727
  Serious: No
  Sender: FDA-Public Use
  Company Number: US-GLAXOSMITHKLINE-A0521103A

PATIENT
  Age: 51 Year
  Sex: Female

DRUGS (2)
  1. LAMICTAL [Suspect]
     Dosage: 75MG PER DAY
     Route: 048
  2. PROGESTERONE [Concomitant]

REACTIONS (5)
  - ALOPECIA [None]
  - DEPRESSION [None]
  - DRY SKIN [None]
  - MENOPAUSAL SYMPTOMS [None]
  - WEIGHT INCREASED [None]
